FAERS Safety Report 5865808-4 (Version None)
Quarter: 2008Q3

REPORT INFORMATION
  Report Type: 
  Country: None (occurrence: None)
  Receive Date: 20080829
  Receipt Date: 20080818
  Transmission Date: 20090109
  Serious: Yes (Death, Other)
  Sender: FDA-Public Use
  Company Number: AT-ROCHE-582107

PATIENT
  Age: 77 Year
  Sex: Female

DRUGS (5)
  1. CAPECITABINE [Suspect]
     Indication: GASTRIC CANCER
     Route: 065
     Dates: start: 20050701
  2. LEUCOVORIN CALCIUM [Suspect]
     Indication: GASTRIC CANCER
     Route: 065
     Dates: start: 20050301
  3. FLUOROURACIL [Suspect]
     Indication: GASTRIC CANCER
     Route: 065
     Dates: start: 20050301
  4. ETOPOSIDE [Suspect]
     Indication: GASTRIC CANCER
     Dosage: SHE RECEIVED THREE CYCLES OF ETOPOSIDE
     Route: 065
     Dates: start: 20050301
  5. IRINOTECAN HCL [Suspect]
     Indication: GASTRIC CANCER
     Route: 065
     Dates: start: 20050601

REACTIONS (3)
  - CUTANEOUS LUPUS ERYTHEMATOSUS [None]
  - DEATH [None]
  - GASTRIC CANCER [None]
